FAERS Safety Report 21307621 (Version 1)
Quarter: 2022Q3

REPORT INFORMATION
  Report Type: Other
  Country: CA (occurrence: CA)
  Receive Date: 20220908
  Receipt Date: 20220908
  Transmission Date: 20221027
  Serious: Yes (Death, Hospitalization, Other)
  Sender: FDA-Public Use
  Company Number: CA-PFIZER INC-202201127204

PATIENT
  Sex: Female

DRUGS (1)
  1. FILGRASTIM [Suspect]
     Active Substance: FILGRASTIM
     Indication: Prophylaxis
     Dosage: UNK
     Route: 065

REACTIONS (18)
  - Adverse event [Fatal]
  - Anuria [Fatal]
  - Breast cancer metastatic [Fatal]
  - Febrile neutropenia [Fatal]
  - Neoplasm malignant [Fatal]
  - Neuropathy peripheral [Fatal]
  - Thrombosis [Fatal]
  - Chest pain [Fatal]
  - Diarrhoea [Fatal]
  - Fatigue [Fatal]
  - Gastrooesophageal reflux disease [Fatal]
  - Hypersensitivity [Fatal]
  - Infection [Fatal]
  - Mucosal inflammation [Fatal]
  - Nausea [Fatal]
  - Oedema [Fatal]
  - Vomiting [Fatal]
  - Off label use [Unknown]
